FAERS Safety Report 8632259 (Version 2)
Quarter: 2012Q4

REPORT INFORMATION
  Report Type: 
  Country: US (occurrence: US)
  Receive Date: 20120625
  Receipt Date: 20121012
  Transmission Date: 20130627
  Serious: Yes (Hospitalization)
  Sender: FDA-Public Use
  Company Number: US-BAYER-2012-060556

PATIENT
  Age: 15 Year
  Sex: Female
  Weight: 72.56 kg

DRUGS (4)
  1. YAZ [Suspect]
     Indication: POLYCYSTIC OVARIES
     Dosage: UNK
     Dates: start: 2008, end: 2009
  2. YASMIN [Suspect]
     Indication: POLYCYSTIC OVARIES
     Dosage: UNK
     Dates: start: 2008, end: 2009
  3. OCELLA [Suspect]
     Indication: POLYCYSTIC OVARIES
     Dosage: UNK
     Dates: start: 2008, end: 2009
  4. MOTRIN [Concomitant]
     Dosage: UNK
     Dates: start: 2002

REACTIONS (6)
  - Cholelithiasis [None]
  - Pain [None]
  - Fear [None]
  - Injury [None]
  - Pain [None]
  - Stress [None]
